FAERS Safety Report 6398846-6 (Version None)
Quarter: 2009Q4

REPORT INFORMATION
  Report Type: 
  Country: None (occurrence: None)
  Receive Date: 20091013
  Receipt Date: 20090929
  Transmission Date: 20100525
  Serious: Yes (Hospitalization)
  Sender: FDA-Public Use
  Company Number: FR-MYLANLABS-2009S1017097

PATIENT
  Age: 54 Year
  Sex: Female

DRUGS (8)
  1. DIPOTASSIUM CLORAZEPATE [Suspect]
     Dosage: 100 MG/DAY CHANGED TO 20 MG/DAY ON DISCHARGE
  2. DIPOTASSIUM CLORAZEPATE [Suspect]
     Dosage: 20 MG/DAY
  3. CITALOPRAM HYDROBROMIDE [Suspect]
     Indication: MAJOR DEPRESSION
     Dosage: 20 MG/DAY
  4. CYAMEMAZINE [Suspect]
     Indication: MAJOR DEPRESSION
     Dosage: 25 MG/DAY
  5. ACAMPROSATE [Suspect]
     Dosage: 1332 MG/DAY
  6. NICARDIPINE HYDROCHLORIDE [Concomitant]
     Indication: ESSENTIAL HYPERTENSION
     Dosage: 50 MG/DAY
  7. THIAMINE HCL [Concomitant]
     Dosage: 1000 MG/DAY
     Route: 048
  8. PYRIDOXINE [Concomitant]
     Dosage: 500 MG/DAY
     Route: 048

REACTIONS (1)
  - CATATONIA [None]
